FAERS Safety Report 5563570-6 (Version None)
Quarter: 2007Q4

REPORT INFORMATION
  Report Type: 
  Country: None (occurrence: None)
  Receive Date: 20071217
  Receipt Date: 20071017
  Transmission Date: 20080405
  Serious: No
  Sender: FDA-Public Use
  Company Number: US-ASTRAZENECA-2007UW16302

PATIENT
  Age: 73 Year
  Sex: Male
  Weight: 81.6 kg

DRUGS (6)
  1. CRESTOR [Suspect]
     Indication: BLOOD CHOLESTEROL INCREASED
     Route: 048
     Dates: start: 20070629
  2. LOPRESSOR [Concomitant]
  3. VALIUM [Concomitant]
  4. ZOLOFT [Concomitant]
  5. PROTONIX [Concomitant]
  6. VALTREX [Concomitant]

REACTIONS (3)
  - ADVERSE REACTION [None]
  - HEADACHE [None]
  - MUSCLE SPASMS [None]
